FAERS Safety Report 6712297-3 (Version None)
Quarter: 2010Q2

REPORT INFORMATION
  Report Type: 
  Country: None (occurrence: None)
  Receive Date: 20100505
  Receipt Date: 20100430
  Transmission Date: 20101027
  Serious: Yes (Other)
  Sender: FDA-Public Use
  Company Number: US-GILEAD-2010-0028725

PATIENT
  Sex: Male

DRUGS (6)
  1. LETAIRIS [Suspect]
     Indication: IDIOPATHIC PULMONARY FIBROSIS
     Route: 048
     Dates: start: 20100227, end: 20100414
  2. OXYGEN [Concomitant]
  3. PRAVACHOL [Concomitant]
  4. MULTI-VITAMINS [Concomitant]
  5. TYLENOL-500 [Concomitant]
  6. CLEAR LUNG [Concomitant]

REACTIONS (1)
  - CARDIAC FAILURE CONGESTIVE [None]
